FAERS Safety Report 22211789 (Version 7)
Quarter: 2023Q4

REPORT INFORMATION
  Report Type: Spontaneous
  Country: US (occurrence: US)
  Receive Date: 20230414
  Receipt Date: 20231225
  Transmission Date: 20240110
  Serious: Yes (Other)
  Sender: FDA-Public Use
  Company Number: US-SA-SAC20230413001151

PATIENT
  Age: 47 Year
  Sex: Male

DRUGS (4)
  1. ELOCTATE [Suspect]
     Active Substance: EFMOROCTOCOG ALFA
     Dosage: 4000 U (+/- 10%), Q5D FOR BLEEDING
     Route: 042
  2. ELOCTATE [Suspect]
     Active Substance: EFMOROCTOCOG ALFA
     Dosage: 4000 U (+/- 10%), Q5D FOR BLEEDING
     Route: 042
  3. ELOCTATE [Suspect]
     Active Substance: EFMOROCTOCOG ALFA
     Dosage: 4000 U (+/- 10%), PRN FOR BLEEDING/ ACUTE BLEEDING
     Route: 042
  4. ELOCTATE [Suspect]
     Active Substance: EFMOROCTOCOG ALFA
     Dosage: 4000 U (+/- 10%), PRN FOR BLEEDING/ ACUTE BLEEDING
     Route: 042

REACTIONS (9)
  - Haemorrhage [Recovered/Resolved]
  - Haemorrhage [Not Recovered/Not Resolved]
  - Arthralgia [Not Recovered/Not Resolved]
  - Shoulder arthroplasty [Unknown]
  - Tenodesis [Unknown]
  - Shoulder operation [Unknown]
  - Spontaneous haemorrhage [Unknown]
  - Musculoskeletal discomfort [Unknown]
  - Haemorrhage [Recovered/Resolved]

NARRATIVE: CASE EVENT DATE: 20220101
